FAERS Safety Report 24108402 (Version 1)
Quarter: 2024Q3

REPORT INFORMATION
  Report Type: Spontaneous
  Country: GB (occurrence: GB)
  Receive Date: 20240718
  Receipt Date: 20240718
  Transmission Date: 20241017
  Serious: Yes (Other)
  Sender: CIPLA
  Company Number: GB-MHRA-MED-202405071957286520-FKGWQ

PATIENT

DRUGS (1)
  1. FINASTERIDE [Suspect]
     Active Substance: FINASTERIDE
     Indication: Bladder irritation
     Dosage: UNK, 5MG/D
     Route: 065
     Dates: start: 20211208, end: 20231120

REACTIONS (4)
  - Hypertonic bladder [Not Recovered/Not Resolved]
  - Alopecia [Not Recovered/Not Resolved]
  - Genital erosion [Not Recovered/Not Resolved]
  - Medication error [Unknown]

NARRATIVE: CASE EVENT DATE: 20220101
